FAERS Safety Report 6424931-6 (Version None)
Quarter: 2009Q4

REPORT INFORMATION
  Report Type: 
  Country: None (occurrence: None)
  Receive Date: 20091103
  Receipt Date: 20091020
  Transmission Date: 20100525
  Serious: Yes (Disabling)
  Sender: FDA-Public Use
  Company Number: US-MYLANLABS-2009S1016215

PATIENT
  Age: 58 Year
  Sex: Female
  Weight: 77.11 kg

DRUGS (11)
  1. AZATHIOPRINE [Suspect]
     Indication: INTERSTITIAL LUNG DISEASE
     Dates: start: 20090801, end: 20090801
  2. AZATHIOPRINE [Suspect]
     Dates: start: 20090801, end: 20090826
  3. AZATHIOPRINE [Suspect]
     Dates: start: 20090831, end: 20090831
  4. ASPIRIN [Concomitant]
  5. LISINOPRIL AND HYDROCHLOROTHIAZIDE [Concomitant]
     Indication: BLOOD PRESSURE
  6. VALTREX [Concomitant]
     Indication: HERPES VIRUS INFECTION
  7. TRICOR [Concomitant]
     Indication: BLOOD CHOLESTEROL
  8. ZETIA [Concomitant]
     Indication: BLOOD CHOLESTEROL
  9. NEXIUM [Concomitant]
     Indication: HIATUS HERNIA
  10. CALCIUM [Concomitant]
  11. VITAMIN D [Concomitant]

REACTIONS (11)
  - ACTIVITIES OF DAILY LIVING IMPAIRED [None]
  - ARTHRALGIA [None]
  - DRUG INEFFECTIVE [None]
  - HYPERAESTHESIA [None]
  - MUSCULAR WEAKNESS [None]
  - NAUSEA [None]
  - PYREXIA [None]
  - RESPIRATORY TRACT INFLAMMATION [None]
  - TENDON DISORDER [None]
  - VOMITING [None]
  - WEIGHT BEARING DIFFICULTY [None]
